FAERS Safety Report 14108202 (Version 7)
Quarter: 2019Q4

REPORT INFORMATION
  Report Type: Spontaneous
  Country: KR (occurrence: KR)
  Receive Date: 20171019
  Receipt Date: 20191108
  Transmission Date: 20200122
  Serious: Yes (Other)
  Sender: FDA-Public Use
  Company Number: KR-009507513-1710KOR007063

PATIENT
  Age: 43 Year
  Sex: Female
  Weight: 59.5 kg

DRUGS (15)
  1. NOXAFIL [Suspect]
     Active Substance: POSACONAZOLE
     Dosage: 300 MG, ONCE A DAY
     Route: 048
     Dates: start: 20170422, end: 20170706
  2. TARGIN [Concomitant]
     Active Substance: NALOXONE HYDROCHLORIDE\OXYCODONE HYDROCHLORIDE
     Indication: PAIN PROPHYLAXIS
     Dosage: 1 TABLET, THREE TIMES DAY
     Route: 048
     Dates: start: 20170417, end: 20170525
  3. CYTARABINE. [Suspect]
     Active Substance: CYTARABINE
     Indication: ACUTE MONOCYTIC LEUKAEMIA
     Dosage: 85 MILLIGRAM, QD (ONCE DAILY)
     Route: 042
     Dates: start: 20170421, end: 20170427
  4. NEURONTIN [Concomitant]
     Active Substance: GABAPENTIN
     Indication: PAIN IN EXTREMITY
     Dosage: 1 DOSAGE FORM, QD
     Route: 048
     Dates: start: 20170420, end: 20170425
  5. NOXAFIL [Suspect]
     Active Substance: POSACONAZOLE
     Indication: ANTIFUNGAL PROPHYLAXIS
     Dosage: 300 MG, TWICE A DAY
     Route: 048
     Dates: start: 20170421, end: 20170421
  6. ONSETRON [Concomitant]
     Active Substance: ONDANSETRON
     Indication: PROPHYLAXIS OF NAUSEA AND VOMITING
     Dosage: 1 TABLET, TWICE A DAY
     Route: 048
     Dates: start: 20170421, end: 20170531
  7. CYTARABINE. [Suspect]
     Active Substance: CYTARABINE
     Dosage: 3320 MILLIGRAM, ONCE DAILY (QD)
     Route: 042
     Dates: start: 20170525, end: 20170529
  8. TARGIN [Concomitant]
     Active Substance: NALOXONE HYDROCHLORIDE\OXYCODONE HYDROCHLORIDE
     Indication: ANALGESIC THERAPY
  9. URSA TABLETS [Concomitant]
     Indication: PROPHYLAXIS
     Dosage: 1 TABLET, TID (THREE TIMES DAY)
     Route: 048
     Dates: start: 20170424, end: 20170613
  10. ZAVEDOS [Concomitant]
     Active Substance: IDARUBICIN
     Indication: ACUTE MONOCYTIC LEUKAEMIA
     Dosage: 20 MILLIGRAM, ONCE DAILY (QD)
     Route: 042
     Dates: start: 20170421, end: 20170423
  11. NEURONTIN [Concomitant]
     Active Substance: GABAPENTIN
     Indication: PAIN PROPHYLAXIS
  12. SYNTHROID [Concomitant]
     Active Substance: LEVOTHYROXINE SODIUM
     Indication: THYROID CANCER
     Dosage: 1 TABLET, QD(ONCE DAILY)
     Route: 048
  13. LEGALON [Concomitant]
     Active Substance: DIETARY SUPPLEMENT\HERBALS\MILK THISTLE
     Indication: PROPHYLAXIS
     Dosage: 1 CAPSULE, TWICE DAY (STRENGHT: 140 (UNITS UNSPECIFIED))
     Route: 048
     Dates: start: 20170424, end: 20170614
  14. ALLOPURINOL. [Concomitant]
     Active Substance: ALLOPURINOL
     Indication: PROPHYLAXIS
     Dosage: 1 TABLET, QD (ONCE DAILY)
     Route: 048
     Dates: start: 20170421, end: 20170711
  15. ZAVEDOS [Concomitant]
     Active Substance: IDARUBICIN
     Dosage: 16 MILLIGRAM, ONCE DAILY (QD)
     Route: 042
     Dates: start: 20170525, end: 20170527

REACTIONS (9)
  - Nephrotic syndrome [Recovered/Resolved]
  - Thrombocytopenia [Not Recovered/Not Resolved]
  - Vaginal haemorrhage [Recovered/Resolved]
  - Hypercholesterolaemia [Recovered/Resolved]
  - Glomerulonephritis acute [Recovered/Resolved]
  - Pyrexia [Recovered/Resolved]
  - Hypertension [Recovering/Resolving]
  - Epistaxis [Recovered/Resolved]
  - Enterococcal bacteraemia [Recovered/Resolved]

NARRATIVE: CASE EVENT DATE: 201704
